FAERS Safety Report 7495342-X (Version None)
Quarter: 2011Q2

REPORT INFORMATION
  Report Type: 
  Country: None (occurrence: None)
  Receive Date: 20110523
  Receipt Date: 20110512
  Transmission Date: 20111010
  Serious: Yes (Hospitalization)
  Sender: FDA-Public Use
  Company Number: US-BIOGENIDEC-2011BI009813

PATIENT
  Age: 47 Year
  Sex: Female

DRUGS (3)
  1. AVONEX [Suspect]
     Indication: MULTIPLE SCLEROSIS
     Route: 030
     Dates: start: 20100901
  2. MEDICATIONS (NOS) [Concomitant]
     Indication: HYPERTENSION
     Dates: end: 20101101
  3. AVONEX [Suspect]
     Route: 030
     Dates: start: 20030101

REACTIONS (1)
  - CARDIAC FAILURE CONGESTIVE [None]
